FAERS Safety Report 5636999-5 (Version None)
Quarter: 2008Q1

REPORT INFORMATION
  Report Type: 
  Country: None (occurrence: None)
  Receive Date: 20080225
  Receipt Date: 20070427
  Transmission Date: 20080703
  Serious: No
  Sender: FDA-Public Use
  Company Number: US-BRISTOL-MYERS SQUIBB COMPANY-13764915

PATIENT
  Age: 66 Year
  Sex: Female

DRUGS (3)
  1. GLUCOPHAGE [Suspect]
     Indication: TYPE 2 DIABETES MELLITUS
     Dates: start: 19980101
  2. NOVOLIN 70/30 [Suspect]
     Indication: TYPE 2 DIABETES MELLITUS
  3. LITHIUM CARBONATE [Concomitant]

REACTIONS (1)
  - BLOOD GLUCOSE INCREASED [None]
